FAERS Safety Report 9358866 (Version 1)
Quarter: 2013Q2

REPORT INFORMATION
  Report Type: Spontaneous
  Country: GB (occurrence: GB)
  Receive Date: 20130620
  Receipt Date: 20130620
  Transmission Date: 20140414
  Serious: Yes (Other)
  Sender: FDA-Public Use
  Company Number: GB-B.I. PHARMACEUTICALS,INC./RIDGEFIELD-2013-UK-01278UK

PATIENT
  Age: 55 Year
  Sex: Female

DRUGS (1)
  1. TRAJENTA [Suspect]
     Indication: TYPE 2 DIABETES MELLITUS

REACTIONS (2)
  - Swollen tongue [Recovered/Resolved]
  - Throat tightness [Recovered/Resolved]
